FAERS Safety Report 8545417-9 (Version None)
Quarter: 2012Q3

REPORT INFORMATION
  Report Type: 
  Country: None (occurrence: None)
  Receive Date: 20120727
  Receipt Date: 20120227
  Transmission Date: 20120928
  Serious: No
  Sender: FDA-Public Use
  Company Number: US-ASTRAZENECA-2011SE66669

PATIENT
  Age: 47 Year
  Sex: Male

DRUGS (3)
  1. TRAZODONE HCL [Concomitant]
  2. SEROQUEL [Suspect]
     Dosage: 100MG IN THE MORNING AND 400MG IN THE EVENING
     Route: 048
  3. SEROQUEL [Suspect]
     Indication: SCHIZOAFFECTIVE DISORDER BIPOLAR TYPE
     Route: 048

REACTIONS (7)
  - FOOT FRACTURE [None]
  - DYSPEPSIA [None]
  - DIZZINESS [None]
  - FALL [None]
  - ACCIDENT [None]
  - DRUG DOSE OMISSION [None]
  - ADVERSE EVENT [None]
